FAERS Safety Report 6279813-X (Version None)
Quarter: 2009Q3

REPORT INFORMATION
  Report Type: 
  Country: None (occurrence: None)
  Receive Date: 20090723
  Receipt Date: 20090721
  Transmission Date: 20100115
  Serious: No
  Sender: FDA-Public Use
  Company Number: US-B.I. PHARMACEUTICALS,INC./RIDGEFIELD-2009-BP-08060BP

PATIENT
  Sex: Female

DRUGS (10)
  1. SPIRIVA [Suspect]
     Indication: CHRONIC OBSTRUCTIVE PULMONARY DISEASE
     Dosage: 18 MCG
  2. SPIRIVA [Suspect]
     Indication: EMPHYSEMA
  3. COMBIVENT [Concomitant]
     Indication: CHRONIC OBSTRUCTIVE PULMONARY DISEASE
     Dosage: 6 PUF
  4. COMBIVENT [Concomitant]
     Indication: DYSPNOEA
  5. ADVAIR DISKUS 100/50 [Concomitant]
     Indication: DYSPNOEA
  6. ALBUTEROL SULFATE [Concomitant]
     Indication: DYSPNOEA
  7. OTHER PRESCRIPTION MEDICATION [Concomitant]
     Indication: DYSPNOEA
  8. LAMITOL [Concomitant]
  9. LORAZEPAM [Concomitant]
     Dosage: 1 MG
  10. HYDROMORPHONE HCL [Concomitant]

REACTIONS (2)
  - FEELING ABNORMAL [None]
  - URTICARIA [None]
